FAERS Safety Report 9922208 (Version 1)
Quarter: 2014Q1

REPORT INFORMATION
  Report Type: Spontaneous
  Country: GB (occurrence: GB)
  Receive Date: 20140225
  Receipt Date: 20140225
  Transmission Date: 20141002
  Serious: Yes (Other)
  Sender: FDA-Public Use
  Company Number: GB-TEVA-464581ISR

PATIENT
  Age: 24 Year
  Sex: Female
  Weight: 81.18 kg

DRUGS (2)
  1. CITALOPRAM [Suspect]
     Indication: DEPRESSION
     Dosage: 20 MILLIGRAM DAILY;
     Route: 048
     Dates: start: 20140209
  2. MICROGYNON [Concomitant]

REACTIONS (5)
  - Nausea [Not Recovered/Not Resolved]
  - Dizziness postural [Not Recovered/Not Resolved]
  - Tremor [Not Recovered/Not Resolved]
  - Flat affect [Recovering/Resolving]
  - Decreased appetite [Not Recovered/Not Resolved]
